FAERS Safety Report 23653068 (Version 2)
Quarter: 2024Q1

REPORT INFORMATION
  Report Type: Spontaneous
  Country: TH (occurrence: TH)
  Receive Date: 20240320
  Receipt Date: 20240327
  Transmission Date: 20240410
  Serious: Yes (Other)
  Sender: FDA-Public Use
  Company Number: TH-AMERICAN REGENT INC-2024000986

PATIENT
  Sex: Female

DRUGS (1)
  1. FERINJECT [Suspect]
     Active Substance: FERRIC CARBOXYMALTOSE
     Indication: Iron deficiency anaemia
     Dosage: SINGLE DOSE (EVERY ONE DAY) WITH 250 ML OF NORMAL SALINE (1000 MG, 1 IN 1 TOTAL)
     Dates: start: 20240307, end: 202403

REACTIONS (2)
  - Drug hypersensitivity [Recovering/Resolving]
  - Maternal exposure during pregnancy [Unknown]

NARRATIVE: CASE EVENT DATE: 20240307
